FAERS Safety Report 25137043 (Version 2)
Quarter: 2025Q2

REPORT INFORMATION
  Report Type: Spontaneous
  Country: JP (occurrence: JP)
  Receive Date: 20250328
  Receipt Date: 20250630
  Transmission Date: 20250717
  Serious: Yes (Hospitalization)
  Sender: ARDELYX
  Company Number: JP-ARDELYX-2025ARDX002189

PATIENT
  Age: 9 Decade
  Sex: Male

DRUGS (1)
  1. TENAPANOR HYDROCHLORIDE [Suspect]
     Active Substance: TENAPANOR HYDROCHLORIDE
     Indication: Hyperphosphataemia
     Route: 048
     Dates: end: 202503

REACTIONS (3)
  - Malnutrition [Recovered/Resolved]
  - Asthenia [Recovered/Resolved]
  - Sarcopenia [Recovered/Resolved]
